FAERS Safety Report 20142537 (Version 1)
Quarter: 2021Q4

REPORT INFORMATION
  Report Type: Spontaneous
  Country: US (occurrence: None)
  Receive Date: 20211202
  Receipt Date: 20211202
  Transmission Date: 20220303
  Serious: No
  Sender: FDA-Public Use
  Company Number: US-ROCHE-2887097

PATIENT
  Sex: Female

DRUGS (1)
  1. EVRYSDI [Suspect]
     Active Substance: RISDIPLAM
     Indication: Spinal muscular atrophy
     Dosage: NO
     Route: 048
     Dates: start: 202012, end: 202105

REACTIONS (2)
  - Muscular weakness [Recovered/Resolved]
  - Bladder disorder [Recovered/Resolved]
